FAERS Safety Report 26203602 (Version 1)
Quarter: 2025Q4

REPORT INFORMATION
  Report Type: Report from Study
  Country: MX (occurrence: MX)
  Receive Date: 20251226
  Receipt Date: 20251226
  Transmission Date: 20260118
  Serious: Yes (Hospitalization)
  Sender: BIOVITRUM
  Company Number: MX-AstraZeneca-CH-00986546A

PATIENT
  Age: 5 Week
  Sex: Male
  Weight: 5.5 kg

DRUGS (3)
  1. PALIVIZUMAB [Suspect]
     Active Substance: PALIVIZUMAB
     Indication: Respiratory syncytial virus infection
     Dosage: UNK UNK, QMONTH
     Route: 030
     Dates: start: 20251006, end: 20251006
  2. PALIVIZUMAB [Suspect]
     Active Substance: PALIVIZUMAB
     Dosage: 0.675 MILLILITER, QMONTH
     Route: 030
     Dates: start: 20251103, end: 20251103
  3. PALIVIZUMAB [Suspect]
     Active Substance: PALIVIZUMAB
     Dosage: 0.825 MILLILITER, QMONTH
     Route: 030
     Dates: start: 20251201, end: 20251201

REACTIONS (3)
  - Irritability [Recovered/Resolved]
  - Hypertension [Recovering/Resolving]
  - Urinary tract infection [Recovered/Resolved]

NARRATIVE: CASE EVENT DATE: 20251011
